FAERS Safety Report 8838463 (Version 1)
Quarter: 2012Q4

REPORT INFORMATION
  Report Type: 
  Country: US (occurrence: US)
  Receive Date: 20121012
  Receipt Date: 20121012
  Transmission Date: 20130627
  Serious: Yes (Hospitalization, Other)
  Sender: FDA-Public Use
  Company Number: CHPA2012US021127

PATIENT
  Age: 64 Year
  Sex: Female

DRUGS (6)
  1. EXCEDRIN EXTRA STRENGTH [Suspect]
     Indication: HEADACHE
     Dosage: 8 DF, QD
     Route: 048
     Dates: start: 1967
  2. OXYCODONE [Concomitant]
     Dosage: Unk, Unk
  3. PERCOCET [Concomitant]
     Dosage: Unk, Unk
  4. VICODIN [Concomitant]
     Dosage: Unk, Unk
  5. MORPHINE [Concomitant]
     Dosage: Unk, Unk
  6. TYLENOL [Concomitant]
     Dosage: Unk, Unk

REACTIONS (4)
  - Infection [Recovered/Resolved]
  - Drug dependence [Not Recovered/Not Resolved]
  - Incorrect drug administration duration [Unknown]
  - Inappropriate schedule of drug administration [Unknown]
